FAERS Safety Report 12610294 (Version 1)
Quarter: 2016Q3

REPORT INFORMATION
  Report Type: Spontaneous
  Country: US (occurrence: None)
  Receive Date: 20160729
  Receipt Date: 20160729
  Transmission Date: 20161109
  Serious: No
  Sender: FDA-Public Use
  Company Number: None

PATIENT
  Age: 86 Year
  Sex: Female
  Weight: 61.24 kg

DRUGS (15)
  1. CLOPIDOGREL [Concomitant]
     Active Substance: CLOPIDOGREL BISULFATE
  2. FELODIPLINE [Concomitant]
  3. VIT ^C^ [Concomitant]
  4. PAXIL [Suspect]
     Active Substance: PAROXETINE HYDROCHLORIDE
     Indication: CRYING
     Dosage: 1 PILL ONCE DAILY MOUTH
     Route: 048
     Dates: start: 2000, end: 2016
  5. PAXIL [Suspect]
     Active Substance: PAROXETINE HYDROCHLORIDE
     Indication: EMOTIONAL DISORDER
     Dosage: 1 PILL ONCE DAILY MOUTH
     Route: 048
     Dates: start: 2000, end: 2016
  6. PAROXETINE. [Suspect]
     Active Substance: PAROXETINE
  7. LISINOPRIL. [Concomitant]
     Active Substance: LISINOPRIL
  8. ATENOLOL. [Concomitant]
     Active Substance: ATENOLOL
  9. JANUVIA [Concomitant]
     Active Substance: SITAGLIPTIN PHOSPHATE
  10. OMEGA-3 - FISH OIL [Concomitant]
  11. TIMOLOL. [Concomitant]
     Active Substance: TIMOLOL
  12. MULTI-VIT FOR WOMEN [Concomitant]
  13. PAXIL [Suspect]
     Active Substance: PAROXETINE HYDROCHLORIDE
     Indication: ANXIETY
     Dosage: 1 PILL ONCE DAILY MOUTH
     Route: 048
     Dates: start: 2000, end: 2016
  14. ATORVASTATIN [Concomitant]
     Active Substance: ATORVASTATIN
  15. LATANOPROST. [Concomitant]
     Active Substance: LATANOPROST

REACTIONS (2)
  - Crying [None]
  - Drug dependence [None]

NARRATIVE: CASE EVENT DATE: 2000
